FAERS Safety Report 15271395 (Version 6)
Quarter: 2018Q4

REPORT INFORMATION
  Report Type: Spontaneous
  Country: DE (occurrence: DE)
  Receive Date: 20180813
  Receipt Date: 20181210
  Transmission Date: 20190204
  Serious: Yes (Other)
  Sender: FDA-Public Use
  Company Number: DE-ASCEND THERAPEUTICS-2053616

PATIENT
  Age: 51 Year
  Sex: Female

DRUGS (7)
  1. PROGESTERONE. [Suspect]
     Active Substance: PROGESTERONE
     Route: 048
     Dates: start: 201508, end: 201510
  2. SERTRALINE [Concomitant]
     Active Substance: SERTRALINE HYDROCHLORIDE
  3. ESTRADIOL. [Suspect]
     Active Substance: ESTRADIOL
     Route: 062
     Dates: start: 201612, end: 201703
  4. VALSARTAN. [Suspect]
     Active Substance: VALSARTAN
     Route: 048
     Dates: start: 201807
  5. LEVOTHYROXINE. [Concomitant]
     Active Substance: LEVOTHYROXINE
  6. PROGESTERONE. [Suspect]
     Active Substance: PROGESTERONE
     Route: 048
     Dates: start: 201612, end: 201703
  7. ESTROGEL [Suspect]
     Active Substance: ESTRADIOL
     Indication: HORMONE REPLACEMENT THERAPY
     Route: 062
     Dates: start: 201508, end: 201510

REACTIONS (4)
  - Product odour abnormal [Unknown]
  - Retinal vein occlusion [Recovered/Resolved]
  - Product taste abnormal [Unknown]
  - Ophthalmic vein thrombosis [Unknown]
